FAERS Safety Report 15733999 (Version 5)
Quarter: 2021Q1

REPORT INFORMATION
  Report Type: Spontaneous
  Country: US (occurrence: PR)
  Receive Date: 20181218
  Receipt Date: 20210225
  Transmission Date: 20210419
  Serious: No
  Sender: FDA-Public Use
  Company Number: PR-PFIZER INC-2018518037

PATIENT
  Age: 14 Year
  Sex: Male
  Weight: 46.27 kg

DRUGS (3)
  1. GENOTROPIN [Suspect]
     Active Substance: SOMATROPIN
     Indication: BLOOD GROWTH HORMONE DECREASED
     Dosage: 1.8 MG (1.8MG INJECTION EACH NIGHT FOR 6 OUT OF 7 DAYS)
     Dates: start: 2018
  2. GENOTROPIN [Suspect]
     Active Substance: SOMATROPIN
     Dosage: 2.6 MG (6 DAYS A WEEK)
     Dates: start: 20190402
  3. GENOTROPIN [Suspect]
     Active Substance: SOMATROPIN
     Dosage: 3.2 MG
     Dates: start: 2019

REACTIONS (5)
  - Accident [Unknown]
  - Tooth injury [Unknown]
  - Device information output issue [Unknown]
  - Device environmental compatibility issue [Unknown]
  - Drug dose omission by device [Unknown]

NARRATIVE: CASE EVENT DATE: 20191016
